FAERS Safety Report 6886534 (Version 2)
Quarter: 2018Q4

REPORT INFORMATION
  Report Type: Spontaneous
  Country: NL (occurrence: NL)
  Receive Date: 20090120
  Receipt Date: 20181218
  Transmission Date: 20190205
  Serious: Yes (Death, Hospitalization, Other)
  Sender: FDA-Public Use
  Company Number: PHBS2009NL00507

PATIENT
  Age: 37 Year
  Sex: Female

DRUGS (5)
  1. CISPLATIN. [Concomitant]
     Active Substance: CISPLATIN
     Indication: CERVIX CARCINOMA
     Dosage: 0.5 MG/ML, UNK
     Route: 065
  2. RISPERIDONE. [Suspect]
     Active Substance: RISPERIDONE
     Indication: PRODUCT USED FOR UNKNOWN INDICATION
     Dosage: DOSAGE FORM: UNSPECIFIED
     Route: 048
  3. CLOMIPRAMINE [Concomitant]
     Active Substance: CLOMIPRAMINE
     Indication: OBSESSIVE-COMPULSIVE DISORDER
     Dosage: 10 MG, UNK
     Route: 048
  4. CLOZAPINE. [Suspect]
     Active Substance: CLOZAPINE
     Indication: SCHIZOPHRENIA
     Dosage: 150 MG, QD
     Route: 048
  5. CLOZAPINE. [Suspect]
     Active Substance: CLOZAPINE
     Indication: SCHIZOPHRENIA

REACTIONS (12)
  - Metastatic neoplasm [Fatal]
  - Pulmonary embolism [Fatal]
  - Malignant neoplasm of unknown primary site [Unknown]
  - Cervix carcinoma [Recovered/Resolved]
  - Obesity [Unknown]
  - Psychotic disorder [Recovered/Resolved]
  - Weight increased [Unknown]
  - Lymphadenopathy [Unknown]
  - Schizophrenia [Recovered/Resolved]
  - Obsessive-compulsive disorder [Recovered/Resolved]
  - Constipation [Unknown]
  - Diabetes mellitus [Unknown]
